FAERS Safety Report 16850659 (Version 1)
Quarter: 2019Q3

REPORT INFORMATION
  Report Type: Spontaneous
  Country: US (occurrence: US)
  Receive Date: 20190925
  Receipt Date: 20190925
  Transmission Date: 20191005
  Serious: Yes (Other)
  Sender: FDA-Public Use
  Company Number: US-THERAPEUTICSMD-2019TMD02589

PATIENT
  Sex: Female

DRUGS (1)
  1. IMVEXXY [Suspect]
     Active Substance: ESTRADIOL
     Dosage: UNK
     Dates: start: 201905

REACTIONS (2)
  - Cholelithiasis [Unknown]
  - Diverticulitis [Unknown]

NARRATIVE: CASE EVENT DATE: 2019
